FAERS Safety Report 5167982-4 (Version None)
Quarter: 2006Q4

REPORT INFORMATION
  Report Type: 
  Country: None (occurrence: None)
  Receive Date: 20061208
  Receipt Date: 20051222
  Transmission Date: 20070319
  Serious: No
  Sender: FDA-Public Use
  Company Number: US-GLAXOSMITHKLINE-A0586850A

PATIENT
  Sex: Male

DRUGS (4)
  1. AVANDAMET [Suspect]
     Dosage: 1TAB UNKNOWN
     Route: 048
     Dates: start: 20040101
  2. GEMFIBROZIL [Concomitant]
  3. LIPITOR [Concomitant]
  4. MULTIPLE MEDICATIONS [Concomitant]

REACTIONS (2)
  - BLOOD CREATININE INCREASED [None]
  - FATIGUE [None]
